FAERS Safety Report 24862694 (Version 1)
Quarter: 2025Q1

REPORT INFORMATION
  Report Type: Spontaneous
  Country: DE (occurrence: DE)
  Receive Date: 20250120
  Receipt Date: 20250120
  Transmission Date: 20250409
  Serious: Yes (Death, Other)
  Sender: AMGEN
  Company Number: DE-AMGEN-DEUSP2025009699

PATIENT

DRUGS (3)
  1. PREDNISONE [Suspect]
     Active Substance: PREDNISONE
     Indication: Immunosuppressant drug therapy
     Route: 065
  2. TACROLIMUS [Concomitant]
     Active Substance: TACROLIMUS
     Indication: Immunosuppressant drug therapy
  3. MYCOPHENOLATE MOFETIL [Concomitant]
     Active Substance: MYCOPHENOLATE MOFETIL
     Indication: Immunosuppressant drug therapy

REACTIONS (12)
  - Multiple organ dysfunction syndrome [Fatal]
  - Sepsis [Fatal]
  - Transplant failure [Fatal]
  - Neoplasm malignant [Fatal]
  - Death [Fatal]
  - Circulatory collapse [Fatal]
  - Cytomegalovirus infection reactivation [Unknown]
  - Transplant rejection [Unknown]
  - Bronchiolitis [Unknown]
  - Complications of transplanted lung [Unknown]
  - Cytomegalovirus infection [Unknown]
  - Donor specific antibody present [Unknown]
